FAERS Safety Report 9328317 (Version 1)
Quarter: 2013Q2

REPORT INFORMATION
  Report Type: Spontaneous
  Country: US (occurrence: US)
  Receive Date: 20130604
  Receipt Date: 20130604
  Transmission Date: 20140414
  Serious: Yes (Other)
  Sender: FDA-Public Use
  Company Number: US-SANOFI-AVENTIS-2012SA048148

PATIENT
  Age: 67 Year
  Sex: Female

DRUGS (5)
  1. LANTUS [Suspect]
     Indication: TYPE 2 DIABETES MELLITUS
     Dosage: DOSE:35 UNIT(S)
     Route: 058
     Dates: start: 2011
  2. SOLOSTAR [Suspect]
     Indication: TYPE 2 DIABETES MELLITUS
     Dates: start: 2011
  3. CELEXA [Suspect]
     Dates: start: 2012, end: 2012
  4. CELEXA [Suspect]
     Dates: start: 2012, end: 2012
  5. METHYLIN [Concomitant]
     Indication: NARCOLEPSY

REACTIONS (4)
  - Hypoglycaemia [Recovered/Resolved]
  - Dysphagia [Recovered/Resolved]
  - Blood glucose decreased [Unknown]
  - Drug interaction [Unknown]
